FAERS Safety Report 18690622 (Version 6)
Quarter: 2021Q3

REPORT INFORMATION
  Report Type: Report from Study
  Country: CN (occurrence: CN)
  Receive Date: 20210101
  Receipt Date: 20210716
  Transmission Date: 20211014
  Serious: Yes (Hospitalization)
  Sender: FDA-Public Use
  Company Number: CN-ASTRAZENECA-2020SF74439

PATIENT
  Age: 20571 Day
  Sex: Female

DRUGS (29)
  1. DURVALUMAB. [Suspect]
     Active Substance: DURVALUMAB
     Indication: CERVIX CARCINOMA
     Route: 042
     Dates: start: 20210220, end: 20210220
  2. CISPLATIN. [Suspect]
     Active Substance: CISPLATIN
     Indication: CERVIX CARCINOMA
     Dosage: 40 MG/M2 ONCE A WEEK
     Route: 042
     Dates: start: 20201103, end: 20201103
  3. RECOMBINANT HUMAN GRANULOCYTE COLONY?STIMULATING FACTOR INJECTION [Concomitant]
     Indication: WHITE BLOOD CELL COUNT DECREASED
     Dosage: 300UG/INHAL DAILY
     Route: 058
     Dates: start: 20201121, end: 20201122
  4. POLYGONUM MULTIFLORUM THUNB., LIGUSTRUM LUCIDUM, MULBERRY, ECLIPTA ... [Concomitant]
     Indication: WHITE BLOOD CELL COUNT DECREASED
     Route: 048
     Dates: start: 20201109, end: 20201118
  5. DURVALUMAB. [Suspect]
     Active Substance: DURVALUMAB
     Indication: CERVIX CARCINOMA
     Route: 042
     Dates: start: 20210125, end: 20210125
  6. ONDANSETRON HYDROCHLORIDE TABLETS [Concomitant]
     Active Substance: ONDANSETRON HYDROCHLORIDE
     Indication: ANTIBIOTIC PROPHYLAXIS
     Route: 048
     Dates: start: 20201119, end: 20201121
  7. RECOMBINANT HUMAN GRANULOCYTE COLONY?STIMULATING FACTOR INJECTION [Concomitant]
     Indication: WHITE BLOOD CELL COUNT DECREASED
     Dosage: 300UG/INHAL DAILY
     Route: 058
     Dates: start: 20201121, end: 20201122
  8. CISPLATIN. [Suspect]
     Active Substance: CISPLATIN
     Indication: CERVIX CARCINOMA
     Dosage: 40 MG/M2 ONCE A WEEK
     Route: 042
     Dates: start: 20201020, end: 20201020
  9. RECOMBINANT HUMAN GRANULOCYTE COLONY?STIMULATING FACTOR INJECTION [Concomitant]
     Indication: WHITE BLOOD CELL COUNT DECREASED
     Dosage: 300UG/INHAL DAILY
     Route: 058
     Dates: start: 20201116, end: 20201117
  10. RECOMBINANT HUMAN GRANULOCYTE COLONY?STIMULATING FACTOR INJECTION [Concomitant]
     Indication: WHITE BLOOD CELL COUNT DECREASED
     Dosage: 300UG/INHAL DAILY
     Route: 058
     Dates: start: 20201109, end: 20201110
  11. CISPLATIN. [Suspect]
     Active Substance: CISPLATIN
     Indication: CERVIX CARCINOMA
     Dosage: 40 MG/M2 ONCE A WEEK
     Route: 042
     Dates: start: 20201027, end: 20201027
  12. SODIUM POTASSIUM MAGNESIUM CALCIUN AND GLUCOSE INJECTION [Concomitant]
     Indication: ELECTROCUTION
     Dosage: 500.0ML ONCE/SINGLE ADMINISTRATION
     Route: 042
     Dates: start: 20201127, end: 20201127
  13. ONDANSETRON HYDROCHLORIDE TABLETS [Concomitant]
     Active Substance: ONDANSETRON HYDROCHLORIDE
     Indication: VOMITING
     Route: 048
     Dates: start: 20201119, end: 20201121
  14. MUCOPOLYSACCHARIDE POLYSULFATE CREAM [Concomitant]
     Indication: PHLEBITIS
     Dosage: 14.0G ONCE/SINGLE ADMINISTRATION
     Route: 061
     Dates: start: 20201027, end: 20201128
  15. DURVALUMAB. [Suspect]
     Active Substance: DURVALUMAB
     Indication: CERVIX CARCINOMA
     Route: 042
     Dates: start: 20201119, end: 20201119
  16. DURVALUMAB. [Suspect]
     Active Substance: DURVALUMAB
     Indication: CERVIX CARCINOMA
     Route: 042
     Dates: start: 20201231, end: 20201231
  17. DURVALUMAB. [Suspect]
     Active Substance: DURVALUMAB
     Indication: CERVIX CARCINOMA
     Route: 042
     Dates: start: 20210513, end: 20210513
  18. CISPLATIN. [Suspect]
     Active Substance: CISPLATIN
     Indication: CERVIX CARCINOMA
     Dosage: 40 MG/M2 ONCE A WEEK
     Route: 042
     Dates: start: 20201127, end: 20201127
  19. ONDANSETRON HYDROCHLORIDE TABLETS [Concomitant]
     Active Substance: ONDANSETRON HYDROCHLORIDE
     Indication: VOMITING
     Route: 048
     Dates: start: 20201127, end: 20201129
  20. DURVALUMAB. [Suspect]
     Active Substance: DURVALUMAB
     Indication: CERVIX CARCINOMA
     Route: 042
     Dates: start: 20201013, end: 20201013
  21. DURVALUMAB. [Suspect]
     Active Substance: DURVALUMAB
     Indication: CERVIX CARCINOMA
     Route: 042
     Dates: start: 20210318, end: 20210318
  22. SODIUM POTASSIUM MAGNESIUM CALCIUN AND GLUCOSE INJECTION [Concomitant]
     Indication: ELECTROCUTION
     Dosage: 500.0ML ONCE/SINGLE ADMINISTRATION
     Route: 042
     Dates: start: 20201119, end: 20201119
  23. RECOMBINANT HUMAN INTERLEUKIN?11 FOR INJECTION [Concomitant]
     Indication: PLATELET COUNT DECREASED
     Route: 058
     Dates: start: 20201109, end: 20201113
  24. DURVALUMAB. [Suspect]
     Active Substance: DURVALUMAB
     Indication: CERVIX CARCINOMA
     Route: 042
     Dates: start: 20210415, end: 20210415
  25. CISPLATIN. [Suspect]
     Active Substance: CISPLATIN
     Indication: CERVIX CARCINOMA
     Dosage: 40 MG/M2 ONCE A WEEK
     Route: 042
     Dates: start: 20201013, end: 20201013
  26. CISPLATIN. [Suspect]
     Active Substance: CISPLATIN
     Indication: CERVIX CARCINOMA
     Dosage: 40 MG/M2 ONCE A WEEK
     Route: 042
     Dates: start: 20201119, end: 20201119
  27. ONDANSETRON HYDROCHLORIDE TABLETS [Concomitant]
     Active Substance: ONDANSETRON HYDROCHLORIDE
     Indication: ANTIBIOTIC PROPHYLAXIS
     Route: 048
     Dates: start: 20201127, end: 20201129
  28. RECOMBINANT HUMAN GRANULOCYTE COLONY?STIMULATING FACTOR INJECTION [Concomitant]
     Indication: WHITE BLOOD CELL COUNT DECREASED
     Dosage: 300UG/INHAL DAILY
     Route: 058
     Dates: start: 20201109, end: 20201110
  29. RECOMBINANT HUMAN GRANULOCYTE COLONY?STIMULATING FACTOR INJECTION [Concomitant]
     Indication: WHITE BLOOD CELL COUNT DECREASED
     Dosage: 300UG/INHAL DAILY
     Route: 058
     Dates: start: 20201116, end: 20201117

REACTIONS (1)
  - Platelet count decreased [Recovered/Resolved]

NARRATIVE: CASE EVENT DATE: 20201208
